FAERS Safety Report 23416295 (Version 1)
Quarter: 2024Q1

REPORT INFORMATION
  Report Type: Spontaneous
  Country: US (occurrence: None)
  Receive Date: 20240117
  Receipt Date: 20240117
  Transmission Date: 20240410
  Serious: No
  Sender: FDA-Public Use
  Company Number: None

PATIENT
  Age: 45 Year
  Sex: Female

DRUGS (1)
  1. MONISTAT [Suspect]
     Active Substance: MICONAZOLE NITRATE
     Indication: Vulvovaginal mycotic infection
     Dates: start: 20240115, end: 20240115

REACTIONS (3)
  - Chemical burn of genitalia [None]
  - Administration site pain [None]
  - Insomnia [None]

NARRATIVE: CASE EVENT DATE: 20240117
